FAERS Safety Report 7466901-5 (Version None)
Quarter: 2011Q2

REPORT INFORMATION
  Report Type: 
  Country: None (occurrence: None)
  Receive Date: 20110509
  Receipt Date: 20100922
  Transmission Date: 20111010
  Serious: No
  Sender: FDA-Public Use
  Company Number: US-ALEXION-A201001212

PATIENT
  Sex: Male

DRUGS (5)
  1. SOLIRIS [Suspect]
     Indication: PAROXYSMAL NOCTURNAL HAEMOGLOBINURIA
     Dosage: 600 MG, UNK
     Route: 042
     Dates: start: 20070613
  2. EXJADE [Concomitant]
     Dosage: 2500 MG, QD
     Route: 048
  3. FOLIC ACID [Concomitant]
     Dosage: 1000 UG, QD
     Route: 048
  4. SOLIRIS [Suspect]
     Dosage: 900 MG, Q2W
     Route: 042
     Dates: start: 20100711
  5. PROTONIX [Concomitant]
     Dosage: 40 MG, QD
     Route: 048

REACTIONS (1)
  - CHEST DISCOMFORT [None]
